FAERS Safety Report 6603609-X (Version None)
Quarter: 2010Q1

REPORT INFORMATION
  Report Type: 
  Country: None (occurrence: None)
  Receive Date: 20100226
  Receipt Date: 20091124
  Transmission Date: 20100710
  Serious: No
  Sender: FDA-Public Use
  Company Number: A0826641A

PATIENT
  Age: 78 Year
  Sex: Female

DRUGS (9)
  1. VALTREX [Suspect]
     Dosage: 500MG PER DAY
     Route: 048
     Dates: start: 20091120, end: 20091123
  2. BACTRIM [Concomitant]
  3. NEXIUM [Concomitant]
  4. VYTORIN [Concomitant]
  5. COREG [Concomitant]
  6. VITAMIN [Concomitant]
  7. UNKNOWN STOMACH MEDICATION [Concomitant]
  8. HEART MEDICATION [Concomitant]
  9. UNKNOWN MEDICATION [Concomitant]

REACTIONS (5)
  - AMNESIA [None]
  - DIZZINESS [None]
  - GAIT DISTURBANCE [None]
  - PARAESTHESIA [None]
  - SPEECH DISORDER [None]
